FAERS Safety Report 10754093 (Version 1)
Quarter: 2015Q1

REPORT INFORMATION
  Report Type: Report from Study
  Country: US (occurrence: US)
  Receive Date: 20150202
  Receipt Date: 20150202
  Transmission Date: 20150721
  Serious: Yes (Death)
  Sender: FDA-Public Use
  Company Number: US-ROCHE-1521031

PATIENT
  Age: 94 Year
  Sex: Female

DRUGS (1)
  1. LUCENTIS [Suspect]
     Active Substance: RANIBIZUMAB
     Indication: MACULAR DEGENERATION
     Dosage: EVERY 4-8 WEEKS
     Route: 050
     Dates: start: 20060919, end: 20110405

REACTIONS (1)
  - Death [Fatal]

NARRATIVE: CASE EVENT DATE: 20140718
